FAERS Safety Report 6801782-1 (Version None)
Quarter: 2010Q2

REPORT INFORMATION
  Report Type: 
  Country: None (occurrence: None)
  Receive Date: 20100629
  Receipt Date: 20100615
  Transmission Date: 20101027
  Serious: Yes (Other)
  Sender: FDA-Public Use
  Company Number: PHEH2006US15224

PATIENT
  Sex: Female

DRUGS (6)
  1. AREDIA [Suspect]
  2. ZOMETA [Suspect]
  3. PREDNISONE [Concomitant]
     Dosage: 40 MG, UNK
  4. ALKERAN [Concomitant]
     Dosage: 8 MG/ DAY
  5. CEMIDON [Concomitant]
  6. TEMAZEPAM [Concomitant]

REACTIONS (6)
  - ANXIETY [None]
  - DECREASED INTEREST [None]
  - GENERAL PHYSICAL HEALTH DETERIORATION [None]
  - OSTEONECROSIS OF JAW [None]
  - PAIN [None]
  - SOFT TISSUE INFLAMMATION [None]
